FAERS Safety Report 24271035 (Version 2)
Quarter: 2024Q3

REPORT INFORMATION
  Report Type: Spontaneous
  Country: ES (occurrence: ES)
  Receive Date: 20240831
  Receipt Date: 20240920
  Transmission Date: 20241017
  Serious: Yes (Other)
  Sender: SHILPA MEDICARE
  Company Number: None

PATIENT
  Age: 62 Year
  Sex: Female

DRUGS (15)
  1. GEMCITABINE [Suspect]
     Active Substance: GEMCITABINE
     Indication: Cutaneous T-cell lymphoma
     Dosage: UNK
     Route: 065
  2. GEMCITABINE [Suspect]
     Active Substance: GEMCITABINE
     Indication: Cutaneous T-cell lymphoma
  3. PREDNISONE [Suspect]
     Active Substance: PREDNISONE
     Indication: Cutaneous T-cell lymphoma
     Dosage: UNK
     Route: 065
  4. CYCLOPHOSPHAMIDE [Suspect]
     Active Substance: CYCLOPHOSPHAMIDE
     Indication: Cutaneous T-cell lymphoma
     Dosage: UNK
     Route: 065
  5. CYCLOPHOSPHAMIDE [Suspect]
     Active Substance: CYCLOPHOSPHAMIDE
     Indication: Cutaneous T-cell lymphoma
  6. ALEMTUZUMAB [Suspect]
     Active Substance: ALEMTUZUMAB
     Indication: Cutaneous T-cell lymphoma
     Dosage: UNK
     Route: 065
  7. METHOTREXATE [Suspect]
     Active Substance: METHOTREXATE
     Indication: Cutaneous T-cell lymphoma
     Dosage: UNK
     Route: 065
  8. METHOTREXATE [Suspect]
     Active Substance: METHOTREXATE
     Indication: Cutaneous T-cell lymphoma
  9. VINCRISTINE [Suspect]
     Active Substance: VINCRISTINE
     Indication: Cutaneous T-cell lymphoma
     Dosage: UNK
     Route: 065
  10. DOXORUBICIN [Suspect]
     Active Substance: DOXORUBICIN
     Indication: Cutaneous T-cell lymphoma
     Dosage: UNK
     Route: 065
  11. DOXORUBICIN [Suspect]
     Active Substance: DOXORUBICIN
     Indication: Cutaneous T-cell lymphoma
  12. BEXAROTENE [Concomitant]
     Active Substance: BEXAROTENE
     Indication: Cutaneous T-cell lymphoma
     Dosage: UNK
     Route: 065
  13. PENTOSTATIN [Concomitant]
     Active Substance: PENTOSTATIN
     Indication: Cutaneous T-cell lymphoma
     Dosage: UNK
     Route: 065
  14. INTERFERON [Concomitant]
     Active Substance: INTERFERON
     Indication: Cutaneous T-cell lymphoma
     Dosage: UNK
     Route: 065
  15. MECHLORETHAMINE [Concomitant]
     Active Substance: MECHLORETHAMINE
     Indication: Cutaneous T-cell lymphoma
     Dosage: UNK
     Route: 065

REACTIONS (4)
  - Dermatitis exfoliative generalised [Recovering/Resolving]
  - Rash pruritic [Recovering/Resolving]
  - Drug-disease interaction [Recovering/Resolving]
  - Lymphadenopathy [Recovering/Resolving]

NARRATIVE: CASE EVENT DATE: 20200101
